FAERS Safety Report 10383651 (Version 1)
Quarter: 2014Q1

REPORT INFORMATION
  Report Type: Spontaneous
  Country: US (occurrence: None)
  Receive Date: 20140306
  Receipt Date: 20140306
  Transmission Date: 20141002
  Serious: Yes (Other)
  Sender: FDA-Public Use
  Company Number: 163-21880-13080950

PATIENT
  Age: 71 Year
  Sex: Male
  Weight: 83 kg

DRUGS (14)
  1. REVLIMID (LENALIDOMIDE) (25 MILLIGRAM, CAPSULES) [Suspect]
     Indication: PLASMA CELL MYELOMA
     Route: 048
     Dates: start: 20130620
  2. COREG (CARVEDILOL) [Concomitant]
  3. FERROUS GLUCONATE [Concomitant]
  4. MIRALAX (MACROGROL) [Concomitant]
  5. PERCOCET (OCYCOCET) [Concomitant]
  6. MORPHINE SULFATE (MORPHINE SULFATE) [Concomitant]
  7. SENOKOT (SENNA FRUIT) [Concomitant]
  8. VITAMIN C (ASCORBIC ACID) [Concomitant]
  9. COLACE (DOCUSATE SODIUM) [Concomitant]
  10. DEXAMETHASONE [Concomitant]
  11. MS CONTIN (MORHPINE SULFATE) [Concomitant]
  12. LAXATIVE (SENNOSIDE A+B) [Concomitant]
  13. BABY ASPIRIN (ACETYLSALICYLIC ACID) [Concomitant]
  14. MEGACE (MEGESTROL ACETATE) [Concomitant]

REACTIONS (7)
  - Bone marrow failure [None]
  - Thrombocytopenia [None]
  - Neutropenia [None]
  - Skin exfoliation [None]
  - Rash generalised [None]
  - Dry skin [None]
  - Contusion [None]
